FAERS Safety Report 5149297-3 (Version None)
Quarter: 2006Q4

REPORT INFORMATION
  Report Type: 
  Country: None (occurrence: None)
  Receive Date: 20061113
  Receipt Date: 20061108
  Transmission Date: 20070319
  Serious: Yes (Life-Threatening)
  Sender: FDA-Public Use
  Company Number: JP-JPN-A200604786

PATIENT
  Age: 26 Year
  Sex: Female

DRUGS (1)
  1. ZOVIRAX [Suspect]
     Indication: MENINGITIS
     Dosage: 250MG THREE TIMES PER DAY
     Route: 042
     Dates: start: 20061102, end: 20061104

REACTIONS (4)
  - DISSEMINATED INTRAVASCULAR COAGULATION [None]
  - HAEMODIALYSIS [None]
  - HEPATIC FUNCTION ABNORMAL [None]
  - RENAL IMPAIRMENT [None]
